FAERS Safety Report 5583551-6 (Version None)
Quarter: 2008Q1

REPORT INFORMATION
  Report Type: 
  Country: None (occurrence: None)
  Receive Date: 20080107
  Receipt Date: 20080102
  Transmission Date: 20080703
  Serious: Yes (Other)
  Sender: FDA-Public Use
  Company Number: FI-ABBOTT-08P-055-0432277-00

PATIENT
  Age: 84 Year
  Sex: Male

DRUGS (2)
  1. WARFARIN SODIUM [Suspect]
     Indication: ATRIAL FIBRILLATION
     Dosage: NOT REPORTED
  2. WARFARIN SODIUM [Suspect]
     Dosage: NOT REPORTED

REACTIONS (1)
  - BLUE TOE SYNDROME [None]
